FAERS Safety Report 4860837-1 (Version None)
Quarter: 2005Q4

REPORT INFORMATION
  Report Type: 
  Country: None (occurrence: None)
  Receive Date: 20051220
  Receipt Date: 20051209
  Transmission Date: 20060501
  Serious: Yes (Life-Threatening)
  Sender: FDA-Public Use
  Company Number: ES-AVENTIS-200514919EU

PATIENT
  Age: 86 Year
  Sex: Male

DRUGS (3)
  1. SEGURIL [Suspect]
     Dosage: DOSE: 40MG/TBL
     Route: 048
     Dates: end: 20050226
  2. ALDACTONE [Suspect]
     Dosage: DOSE: 25MG/TBL
     Route: 048
     Dates: end: 20050226
  3. HIGROTON [Suspect]
     Route: 048
     Dates: end: 20050226

REACTIONS (1)
  - RENAL FAILURE ACUTE [None]
